FAERS Safety Report 21549926 (Version 1)
Quarter: 2022Q4

REPORT INFORMATION
  Report Type: Spontaneous
  Country: CA (occurrence: None)
  Receive Date: 20221103
  Receipt Date: 20221103
  Transmission Date: 20230112
  Serious: Yes (Hospitalization, Other)
  Sender: FDA-Public Use
  Company Number: 2022A359883

PATIENT
  Sex: Male
  Weight: 85 kg

DRUGS (41)
  1. QUETIAPINE FUMARATE [Interacting]
     Active Substance: QUETIAPINE FUMARATE
     Indication: Psychotic disorder
     Route: 065
  2. QUETIAPINE FUMARATE [Interacting]
     Active Substance: QUETIAPINE FUMARATE
     Indication: Product used for unknown indication
     Route: 065
  3. QUETIAPINE FUMARATE [Interacting]
     Active Substance: QUETIAPINE FUMARATE
     Indication: Psychotic disorder
     Route: 065
  4. QUETIAPINE FUMARATE [Interacting]
     Active Substance: QUETIAPINE FUMARATE
     Indication: Product used for unknown indication
     Route: 065
  5. CARBAMAZEPINE [Interacting]
     Active Substance: CARBAMAZEPINE
     Indication: Seizure
     Route: 065
  6. CARBAMAZEPINE [Interacting]
     Active Substance: CARBAMAZEPINE
     Indication: Product used for unknown indication
     Route: 065
  7. CARBAMAZEPINE [Interacting]
     Active Substance: CARBAMAZEPINE
     Indication: Seizure
     Route: 065
  8. CARBAMAZEPINE [Interacting]
     Active Substance: CARBAMAZEPINE
     Indication: Product used for unknown indication
     Route: 065
  9. DIAZEPAM [Interacting]
     Active Substance: DIAZEPAM
     Indication: Seizure
     Dosage: 170.0MG UNKNOWN
     Route: 065
  10. DIAZEPAM [Interacting]
     Active Substance: DIAZEPAM
     Indication: Product used for unknown indication
     Dosage: 170.0MG UNKNOWN
     Route: 065
  11. DIAZEPAM [Interacting]
     Active Substance: DIAZEPAM
     Indication: Seizure
     Dosage: UNKNOWN
     Route: 065
  12. DIAZEPAM [Interacting]
     Active Substance: DIAZEPAM
     Indication: Product used for unknown indication
     Dosage: UNKNOWN
     Route: 065
  13. DIAZEPAM [Interacting]
     Active Substance: DIAZEPAM
     Indication: Seizure
     Dosage: 30.0MG UNKNOWN
     Route: 030
  14. DIAZEPAM [Interacting]
     Active Substance: DIAZEPAM
     Indication: Product used for unknown indication
     Dosage: 30.0MG UNKNOWN
     Route: 030
  15. DIAZEPAM [Interacting]
     Active Substance: DIAZEPAM
     Indication: Seizure
     Dosage: UNKNOWN
     Route: 048
  16. DIAZEPAM [Interacting]
     Active Substance: DIAZEPAM
     Indication: Product used for unknown indication
     Dosage: UNKNOWN
     Route: 048
  17. NORDAZEPAM [Interacting]
     Active Substance: NORDAZEPAM
     Indication: Product used for unknown indication
     Route: 065
  18. OLANZAPINE [Interacting]
     Active Substance: OLANZAPINE
     Indication: Product used for unknown indication
     Route: 065
  19. OLANZAPINE [Interacting]
     Active Substance: OLANZAPINE
     Indication: Product used for unknown indication
     Route: 065
  20. OLANZAPINE [Interacting]
     Active Substance: OLANZAPINE
     Indication: Product used for unknown indication
     Route: 065
  21. OLANZAPINE [Interacting]
     Active Substance: OLANZAPINE
     Indication: Product used for unknown indication
     Route: 065
  22. PHENYTOIN [Interacting]
     Active Substance: PHENYTOIN
     Indication: Seizure
     Route: 065
  23. PHENYTOIN [Interacting]
     Active Substance: PHENYTOIN
     Indication: Product used for unknown indication
     Route: 065
  24. PHENYTOIN [Interacting]
     Active Substance: PHENYTOIN
     Indication: Seizure
     Route: 065
  25. PHENYTOIN [Interacting]
     Active Substance: PHENYTOIN
     Indication: Product used for unknown indication
     Route: 065
  26. VALPROIC ACID [Interacting]
     Active Substance: VALPROIC ACID
     Indication: Seizure
     Route: 065
  27. VALPROIC ACID [Interacting]
     Active Substance: VALPROIC ACID
     Indication: Schizophrenia
     Route: 065
  28. VALPROIC ACID [Interacting]
     Active Substance: VALPROIC ACID
     Indication: Seizure
     Route: 065
  29. VALPROIC ACID [Interacting]
     Active Substance: VALPROIC ACID
     Indication: Schizophrenia
     Route: 065
  30. GEMFIBROZIL [Concomitant]
     Active Substance: GEMFIBROZIL
     Indication: Hypertension
     Route: 065
  31. PROPRANOLOL [Concomitant]
     Active Substance: PROPRANOLOL HYDROCHLORIDE
     Indication: Hypertension
     Route: 065
  32. PROPRANOLOL [Concomitant]
     Active Substance: PROPRANOLOL HYDROCHLORIDE
     Indication: Product used for unknown indication
     Route: 065
  33. PROPRANOLOL [Concomitant]
     Active Substance: PROPRANOLOL HYDROCHLORIDE
     Indication: Hypertension
     Route: 065
  34. PROPRANOLOL [Concomitant]
     Active Substance: PROPRANOLOL HYDROCHLORIDE
     Indication: Product used for unknown indication
     Route: 065
  35. PROPRANOLOL [Concomitant]
     Active Substance: PROPRANOLOL HYDROCHLORIDE
     Indication: Hypertension
     Route: 065
  36. PROPRANOLOL [Concomitant]
     Active Substance: PROPRANOLOL HYDROCHLORIDE
     Indication: Product used for unknown indication
     Route: 065
  37. PROPRANOLOL [Concomitant]
     Active Substance: PROPRANOLOL HYDROCHLORIDE
     Indication: Hypertension
     Route: 065
  38. PROPRANOLOL [Concomitant]
     Active Substance: PROPRANOLOL HYDROCHLORIDE
     Indication: Product used for unknown indication
     Route: 065
  39. PROPRANOLOL [Concomitant]
     Active Substance: PROPRANOLOL HYDROCHLORIDE
     Indication: Hypertension
     Route: 065
  40. PROPRANOLOL [Concomitant]
     Active Substance: PROPRANOLOL HYDROCHLORIDE
     Indication: Product used for unknown indication
     Route: 065
  41. TEMAZEPAM [Concomitant]
     Active Substance: TEMAZEPAM
     Indication: Seizure
     Route: 065

REACTIONS (2)
  - Drug interaction [Unknown]
  - Drug level below therapeutic [Unknown]
